FAERS Safety Report 5319694-1 (Version None)
Quarter: 2007Q2

REPORT INFORMATION
  Report Type: 
  Country: None (occurrence: None)
  Receive Date: 20070508
  Receipt Date: 20070423
  Transmission Date: 20071010
  Serious: Yes (Hospitalization, Other)
  Sender: FDA-Public Use
  Company Number: US-SHR-US-2007-014274

PATIENT
  Age: 25 Year
  Sex: Female

DRUGS (2)
  1. BETASERON [Suspect]
     Indication: RELAPSING-REMITTING MULTIPLE SCLEROSIS
     Dosage: 8 MIU, EVERY 2D
     Route: 058
     Dates: start: 20060419
  2. THERAFLU                                /USA/ [Suspect]
     Dates: start: 20070301

REACTIONS (4)
  - CONVULSION [None]
  - INFLUENZA LIKE ILLNESS [None]
  - PARALYSIS [None]
  - VOMITING [None]
